FAERS Safety Report 4930949-2 (Version None)
Quarter: 2006Q1

REPORT INFORMATION
  Report Type: 
  Country: None (occurrence: None)
  Receive Date: 20060227
  Receipt Date: 20060213
  Transmission Date: 20060701
  Serious: Yes (Hospitalization)
  Sender: FDA-Public Use
  Company Number: 222051

PATIENT
  Age: 40 Year
  Sex: Female
  Weight: 70 kg

DRUGS (5)
  1. MABTHERA(RITUXIMAB) CONC FOR SOLUTION FOR INFUSION [Suspect]
     Indication: B-CELL LYMPHOMA
     Dosage: 780 MG INTRAVENOUS
     Route: 042
     Dates: start: 20050615, end: 20051103
  2. DOXORUBICIN HCL [Suspect]
     Indication: B-CELL LYMPHOMA
     Dosage: 80 MG INTRAVENOUS
     Route: 042
     Dates: start: 20050615, end: 20051013
  3. CYCLOPHOSPHAMIDE [Suspect]
     Indication: B-CELL LYMPHOMA
     Dosage: 1300 MG
     Dates: start: 20050615, end: 20051013
  4. VINCRISTINE [Suspect]
     Indication: B-CELL LYMPHOMA
     Dosage: 2 MG INTRAVENOUS
     Route: 042
     Dates: start: 20050615, end: 20051013
  5. PREDNISONE TAB [Suspect]
     Indication: B-CELL LYMPHOMA
     Dosage: 150 MG INTRAVENOUS
     Route: 042
     Dates: start: 20050615, end: 20051017

REACTIONS (1)
  - GENERAL PHYSICAL HEALTH DETERIORATION [None]
